FAERS Safety Report 15271076 (Version 1)
Quarter: 2018Q3

REPORT INFORMATION
  Report Type: Spontaneous
  Country: US (occurrence: UM)
  Receive Date: 20180813
  Receipt Date: 20180813
  Transmission Date: 20181010
  Serious: No
  Sender: FDA-Public Use
  Company Number: US-JNJFOC-20180720428

PATIENT
  Sex: Female

DRUGS (2)
  1. TYLENOL EXTRA STRENGTH [Suspect]
     Active Substance: ACETAMINOPHEN
     Indication: PAIN MANAGEMENT
     Dosage: EVERY 6 TO 8 HOURS AS NEEDED
     Route: 048
     Dates: start: 20100701
  2. TYLENOL EXTRA STRENGTH [Suspect]
     Active Substance: ACETAMINOPHEN
     Indication: PAIN MANAGEMENT
     Dosage: ONCE
     Route: 048
     Dates: start: 20180715, end: 20180715

REACTIONS (2)
  - Product odour abnormal [Unknown]
  - Incorrect dose administered [Unknown]
